FAERS Safety Report 4690409-3 (Version None)
Quarter: 2005Q2

REPORT INFORMATION
  Report Type: 
  Country: None (occurrence: None)
  Receive Date: 20050615
  Receipt Date: 20041020
  Transmission Date: 20051028
  Serious: Yes (Hospitalization)
  Sender: FDA-Public Use
  Company Number: PL-SANOFI-SYNTHELABO-D01200404263

PATIENT
  Sex: Male
  Weight: 61 kg

DRUGS (4)
  1. SR57746 OR PLACEBO [Suspect]
     Route: 048
     Dates: start: 20040421, end: 20040807
  2. OXALIPLATIN [Suspect]
     Route: 042
     Dates: start: 20040719, end: 20040719
  3. FLUOROURACIL [Suspect]
     Dosage: 400 MG/M2 AS IV BOLUS THEN 600 MG/M2 AS 22 HOURS CONTINUOUS INFUSION D1-D2 Q2W
     Route: 042
     Dates: start: 20040719, end: 20040720
  4. LEUCOVORIN [Suspect]
     Dosage: 200 MG/M2 AS 2 HOURS INFUSION ON D1-D2 Q2W
     Route: 042
     Dates: start: 20040719, end: 20040720

REACTIONS (5)
  - CARCINOEMBRYONIC ANTIGEN INCREASED [None]
  - DIARRHOEA [None]
  - FATIGUE [None]
  - GENERAL PHYSICAL CONDITION [None]
  - NEUTROPENIA [None]
